FAERS Safety Report 24096161 (Version 1)
Quarter: 2024Q3

REPORT INFORMATION
  Report Type: Spontaneous
  Country: FR (occurrence: FR)
  Receive Date: 20240716
  Receipt Date: 20240716
  Transmission Date: 20241017
  Serious: Yes (Other)
  Sender: TEVA
  Company Number: FR-TEVA-VS-3217202

PATIENT
  Age: 4 Year
  Sex: Female

DRUGS (7)
  1. LEVOFLOXACIN [Suspect]
     Active Substance: LEVOFLOXACIN
     Indication: Staphylococcal infection
     Route: 065
  2. AMPHOTERICIN B [Concomitant]
     Active Substance: AMPHOTERICIN B
     Indication: Fusarium infection
     Route: 065
  3. VORICONAZOLE [Concomitant]
     Active Substance: VORICONAZOLE
     Indication: Fusarium infection
     Route: 065
  4. POSACONAZOLE [Suspect]
     Active Substance: POSACONAZOLE
     Indication: Fusarium infection
     Route: 048
  5. LULICONAZOLE [Concomitant]
     Active Substance: LULICONAZOLE
     Indication: Fusarium infection
     Route: 065
  6. MUPIROCIN [Suspect]
     Active Substance: MUPIROCIN
     Indication: Fungal skin infection
     Route: 061
  7. HYDROCORTISONE [Suspect]
     Active Substance: HYDROCORTISONE\HYDROCORTISONE ACETATE
     Indication: Fusarium infection
     Route: 065

REACTIONS (3)
  - Drug intolerance [Unknown]
  - Eye disorder [Unknown]
  - Drug ineffective [Unknown]
